FAERS Safety Report 8060906-1 (Version None)
Quarter: 2012Q1

REPORT INFORMATION
  Report Type: 
  Country: None (occurrence: None)
  Receive Date: 20120120
  Receipt Date: 20110314
  Transmission Date: 20120608
  Serious: No
  Sender: FDA-Public Use
  Company Number: US-ALLERGAN-1103619US

PATIENT
  Sex: Female

DRUGS (2)
  1. SYSTANE ULTRA [Concomitant]
     Dosage: UNK
  2. RESTASIS [Suspect]
     Indication: DRY EYE
     Dosage: 1 GTT, BID
     Route: 047
     Dates: start: 20100801

REACTIONS (4)
  - WRONG TECHNIQUE IN DRUG USAGE PROCESS [None]
  - NASAL ODOUR [None]
  - TOOTHACHE [None]
  - UPPER-AIRWAY COUGH SYNDROME [None]
